FAERS Safety Report 7010905-3 (Version None)
Quarter: 2010Q3

REPORT INFORMATION
  Report Type: 
  Country: None (occurrence: None)
  Receive Date: 20100923
  Receipt Date: 20100923
  Transmission Date: 20110219
  Serious: Yes (Other)
  Sender: FDA-Public Use
  Company Number: None

PATIENT
  Age: 59 Year
  Sex: Male
  Weight: 113.3993 kg

DRUGS (3)
  1. ^ZICAM^ ALLERGY RELIEF [Suspect]
     Indication: NASAL CONGESTION
     Dosage: 1 PUMP PER NOSTRIL EVERY 4 HRS NASAL
     Route: 045
     Dates: start: 20100917, end: 20100919
  2. ^ZICAM^ ALLERGY RELIEF [Suspect]
     Indication: SEASONAL ALLERGY
     Dosage: 1 PUMP PER NOSTRIL EVERY 4 HRS NASAL
     Route: 045
     Dates: start: 20100917, end: 20100919
  3. ^ZICAM^ ALLERGY RELIEF [Suspect]
     Indication: UPPER-AIRWAY COUGH SYNDROME
     Dosage: 1 PUMP PER NOSTRIL EVERY 4 HRS NASAL
     Route: 045
     Dates: start: 20100917, end: 20100919

REACTIONS (2)
  - HYPERSOMNIA [None]
  - SOMNOLENCE [None]
